FAERS Safety Report 7814028-2 (Version None)
Quarter: 2011Q4

REPORT INFORMATION
  Report Type: 
  Country: None (occurrence: None)
  Receive Date: 20111014
  Receipt Date: 20111004
  Transmission Date: 20120403
  Serious: Yes (Death, Hospitalization, Other)
  Sender: FDA-Public Use
  Company Number: US-JNJFOC-20071202395

PATIENT
  Sex: Male
  Weight: 81.19 kg

DRUGS (15)
  1. MERCAPTOPURINE [Suspect]
     Route: 048
  2. ALLOPURINOL [Concomitant]
  3. WELLBUTRIN [Concomitant]
  4. MESALAMINE [Concomitant]
  5. MERCAPTOPURINE [Suspect]
     Route: 048
     Dates: start: 20050201
  6. DOXYCYCLINE [Concomitant]
  7. CLARITIN [Concomitant]
  8. PROTONIX [Concomitant]
  9. BENTYL [Concomitant]
  10. AMBIEN [Concomitant]
  11. STEROIDS NOS [Concomitant]
  12. REMICADE [Suspect]
     Indication: CROHN'S DISEASE
     Dosage: STARTED IN OCT OR NOV-2005
     Route: 042
     Dates: start: 20051001
  13. ZOLOFT [Concomitant]
  14. REMICADE [Suspect]
     Dosage: ONCE EVERY 6 TO 7 WEEKS
     Route: 042
     Dates: end: 20071120
  15. MERCAPTOPURINE [Suspect]
     Indication: CROHN'S DISEASE
     Route: 048

REACTIONS (5)
  - HEPATOSPLENIC T-CELL LYMPHOMA [None]
  - PNEUMOTHORAX [None]
  - RENAL FAILURE [None]
  - MECHANICAL VENTILATION [None]
  - SINUS DISORDER [None]
